FAERS Safety Report 5283772-6 (Version None)
Quarter: 2007Q2

REPORT INFORMATION
  Report Type: 
  Country: None (occurrence: None)
  Receive Date: 20070402
  Receipt Date: 20070320
  Transmission Date: 20071010
  Serious: Yes (Hospitalization)
  Sender: FDA-Public Use
  Company Number: FRWYE650713FEB07

PATIENT
  Age: 36 Year
  Sex: Female

DRUGS (9)
  1. ENBREL [Suspect]
     Indication: JUVENILE ARTHRITIS
     Dosage: 50 MG TOTAL WEEKLY
     Route: 058
     Dates: start: 20040101, end: 20070103
  2. FONZYLANE [Suspect]
     Dosage: UNKNOWN
     Route: 048
     Dates: end: 20061230
  3. ARAVA [Suspect]
     Route: 048
  4. INIPOMP [Concomitant]
     Dosage: UNKNOWN
     Route: 048
  5. ATARAX [Concomitant]
     Dosage: UNKNOWN
     Route: 048
  6. VOLTAREN-XR [Concomitant]
     Dosage: UNKNOWN
     Route: 048
  7. DI-ANTALVIC [Concomitant]
     Dosage: UNKNOWN
     Route: 048
  8. TELFAST [Concomitant]
     Dosage: UNKNOWN
     Route: 048
  9. SOLUPRED [Concomitant]
     Dosage: UNKNOWN
     Route: 048

REACTIONS (5)
  - ANTINUCLEAR ANTIBODY POSITIVE [None]
  - CONDITION AGGRAVATED [None]
  - ECZEMA [None]
  - JUVENILE ARTHRITIS [None]
  - SKIN HYPERPIGMENTATION [None]
